FAERS Safety Report 5420985-4 (Version None)
Quarter: 2007Q3

REPORT INFORMATION
  Report Type: 
  Country: None (occurrence: None)
  Receive Date: 20070817
  Receipt Date: 20070809
  Transmission Date: 20080115
  Serious: Yes (Disabling)
  Sender: FDA-Public Use
  Company Number: 0708-641

PATIENT
  Age: 68 Year
  Sex: Female

DRUGS (3)
  1. DUONEB [Suspect]
     Indication: CHRONIC OBSTRUCTIVE PULMONARY DISEASE
     Dosage: 1 VL, QID, INH
     Route: 055
  2. ADVAIR DISKUS 100/50 [Concomitant]
  3. SINGULAIR [Concomitant]

REACTIONS (2)
  - TOOTH DISCOLOURATION [None]
  - TOOTH EROSION [None]
